FAERS Safety Report 5524728-5 (Version None)
Quarter: 2007Q4

REPORT INFORMATION
  Report Type: 
  Country: None (occurrence: None)
  Receive Date: 20071123
  Receipt Date: 20071116
  Transmission Date: 20080405
  Serious: Yes (Hospitalization, Other)
  Sender: FDA-Public Use
  Company Number: PHFR2007GB03269

PATIENT
  Age: 57 Year
  Sex: Female

DRUGS (4)
  1. CLOZARIL [Suspect]
     Indication: SCHIZOPHRENIA
     Dates: start: 20070117
  2. CLOZARIL [Suspect]
     Dosage: 450 MG, QD
     Route: 048
     Dates: start: 20070401
  3. DEPAKOTE [Concomitant]
     Dosage: 250 MG, BID
     Route: 048
  4. DEPAKOTE [Concomitant]
     Dosage: 500 MG, NOCTE
     Route: 048

REACTIONS (4)
  - CEREBROVASCULAR ACCIDENT [None]
  - DYSARTHRIA [None]
  - HYPERHIDROSIS [None]
  - SOMNOLENCE [None]
